FAERS Safety Report 25712443 (Version 1)
Quarter: 2025Q3

REPORT INFORMATION
  Report Type: Spontaneous
  Country: US (occurrence: US)
  Receive Date: 20250821
  Receipt Date: 20250821
  Transmission Date: 20251021
  Serious: Yes (Other)
  Sender: PFIZER
  Company Number: US-PFIZER INC-202500166896

PATIENT
  Age: 74 Year
  Sex: Female

DRUGS (5)
  1. PALBOCICLIB [Suspect]
     Active Substance: PALBOCICLIB
     Indication: Intraductal proliferative breast lesion
     Route: 048
  2. PALBOCICLIB [Suspect]
     Active Substance: PALBOCICLIB
     Indication: Breast cancer female
  3. ANASTROZOLE [Suspect]
     Active Substance: ANASTROZOLE
     Indication: Intraductal proliferative breast lesion
  4. ANASTROZOLE [Suspect]
     Active Substance: ANASTROZOLE
     Indication: Breast cancer female
  5. GABAPENTIN [Concomitant]
     Active Substance: GABAPENTIN
     Dosage: 600 MG, 1X/DAY (TAKE 1 TABLET BY MOUTH AT BEDTIME)
     Route: 048

REACTIONS (6)
  - Intraductal proliferative breast lesion [Unknown]
  - Breast cancer female [Unknown]
  - Malignant neoplasm progression [Unknown]
  - Neck mass [Unknown]
  - Lymphadenopathy [Unknown]
  - Pulmonary mass [Unknown]
